FAERS Safety Report 8871204 (Version 1)
Quarter: 2012Q4

REPORT INFORMATION
  Report Type: Report from Study
  Country: US (occurrence: US)
  Receive Date: 20121029
  Receipt Date: 20121029
  Transmission Date: 20130627
  Serious: Yes (Hospitalization)
  Sender: FDA-Public Use
  Company Number: US-ROCHE-1148775

PATIENT
  Age: 71 Year
  Sex: Male
  Weight: 69.01 kg

DRUGS (1)
  1. CAPECITABINE [Suspect]
     Indication: OESOPHAGEAL CANCER METASTATIC
     Route: 048
     Dates: start: 20120816

REACTIONS (1)
  - Catheter placement [Recovered/Resolved]
